FAERS Safety Report 23943374 (Version 1)
Quarter: 2024Q2

REPORT INFORMATION
  Report Type: Spontaneous
  Country: US (occurrence: US)
  Receive Date: 20240605
  Receipt Date: 20240605
  Transmission Date: 20240716
  Serious: No
  Sender: FDA-Public Use
  Company Number: US-AMGEN-USASP2024108579

PATIENT

DRUGS (5)
  1. TRASTUZUMAB [Suspect]
     Active Substance: TRASTUZUMAB
     Indication: Hormone receptor negative HER2 positive breast cancer
     Dosage: 80 MILLIGRAM, 2 TIMES/WK
     Route: 029
  2. TRASTUZUMAB [Suspect]
     Active Substance: TRASTUZUMAB
     Indication: Metastases to meninges
     Dosage: 80 MILLIGRAM, QWK
     Route: 029
  3. TRASTUZUMAB [Suspect]
     Active Substance: TRASTUZUMAB
     Dosage: 80 MILLIGRAM, Q2WK
     Route: 029
  4. PERTUZUMAB [Suspect]
     Active Substance: PERTUZUMAB
     Indication: Hormone receptor negative HER2 positive breast cancer
     Dosage: 80 MILLIGRAM
     Route: 029
  5. PERTUZUMAB [Suspect]
     Active Substance: PERTUZUMAB
     Indication: Metastases to meninges

REACTIONS (1)
  - Off label use [Unknown]
